FAERS Safety Report 23568505 (Version 1)
Quarter: 2024Q1

REPORT INFORMATION
  Report Type: Other
  Country: CN (occurrence: None)
  Receive Date: 20240227
  Receipt Date: 20240227
  Transmission Date: 20240410
  Serious: Yes (Death)
  Sender: FDA-Public Use
  Company Number: CN-ROCHE-3515845

PATIENT
  Age: 5 Month
  Sex: Male
  Weight: 3.8 kg

DRUGS (1)
  1. EVRYSDI [Suspect]
     Active Substance: RISDIPLAM
     Indication: Spinal muscular atrophy
     Dosage: 60MG PER VIAL, NASOGASTRIC INTUBATION
     Route: 045
     Dates: start: 20240208, end: 20240225

REACTIONS (1)
  - Death [Fatal]

NARRATIVE: CASE EVENT DATE: 20240225
